FAERS Safety Report 4867464-0 (Version None)
Quarter: 2005Q4

REPORT INFORMATION
  Report Type: 
  Country: None (occurrence: None)
  Receive Date: 20051228
  Receipt Date: 20051220
  Transmission Date: 20060501
  Serious: Yes (Hospitalization)
  Sender: FDA-Public Use
  Company Number: 2005UW19199

PATIENT
  Age: 13 Year
  Sex: Male

DRUGS (6)
  1. SEROQUEL [Suspect]
  2. SEROQUEL [Suspect]
  3. SEROQUEL [Suspect]
     Dates: start: 20051024
  4. LITHIUM [Concomitant]
  5. ERYTHROMYCIN [Concomitant]
     Route: 061
  6. COLACE [Concomitant]

REACTIONS (1)
  - ANGER [None]
